FAERS Safety Report 4650385-6 (Version None)
Quarter: 2005Q2

REPORT INFORMATION
  Report Type: 
  Country: None (occurrence: None)
  Receive Date: 20050429
  Receipt Date: 20050413
  Transmission Date: 20051028
  Serious: No
  Sender: FDA-Public Use
  Company Number: A01200502580

PATIENT

DRUGS (1)
  1. PLAQUENIL [Suspect]

REACTIONS (2)
  - ATRIAL FIBRILLATION [None]
  - DIZZINESS [None]
